FAERS Safety Report 21273784 (Version 2)
Quarter: 2022Q3

REPORT INFORMATION
  Report Type: Spontaneous
  Country: FI (occurrence: None)
  Receive Date: 20220831
  Receipt Date: 20220909
  Transmission Date: 20221027
  Serious: Yes (Other)
  Sender: FDA-Public Use
  Company Number: 2022A295146

PATIENT
  Sex: Male

DRUGS (3)
  1. QUETIAPINE FUMARATE [Suspect]
     Active Substance: QUETIAPINE FUMARATE
     Indication: Psychotic disorder
     Dosage: 100 MG IN EVENING BEFORE SLEEP.
     Route: 065
     Dates: start: 201801
  2. QUETIAPINE FUMARATE [Suspect]
     Active Substance: QUETIAPINE FUMARATE
     Indication: Psychotic disorder
     Dosage: STRENGTH 25 MG; 100 MG IN EVENING BEFORE SLEEP FROM THE BEGINING OF THE YEAR 2019
     Route: 065
     Dates: start: 2019
  3. DIAZEPAM [Concomitant]
     Active Substance: DIAZEPAM
     Dosage: AS A SUBSTITUTE FOR OPAMOX WHILE PATIENT HAS BEEN ABROAD
     Route: 065

REACTIONS (9)
  - Drug dependence [Unknown]
  - Anger [Unknown]
  - Decreased interest [Unknown]
  - Insomnia [Unknown]
  - Depression [Unknown]
  - Drug withdrawal headache [Unknown]
  - Somnolence [Unknown]
  - Weight increased [Unknown]
  - Withdrawal syndrome [Unknown]
